FAERS Safety Report 5754951-6 (Version None)
Quarter: 2008Q2

REPORT INFORMATION
  Report Type: 
  Country: None (occurrence: None)
  Receive Date: 20080602
  Receipt Date: 20080528
  Transmission Date: 20081010
  Serious: Yes (Other)
  Sender: FDA-Public Use
  Company Number: FR-BRISTOL-MYERS SQUIBB COMPANY-14209316

PATIENT
  Age: 59 Year
  Sex: Male

DRUGS (9)
  1. AMIKIN INJ 1 G/4 ML [Suspect]
     Route: 042
     Dates: start: 20080419, end: 20080423
  2. NEXIUM [Suspect]
     Dates: start: 20080418, end: 20080421
  3. CLAVENTIN [Suspect]
     Route: 042
     Dates: start: 20080418, end: 20080421
  4. CORDARONE [Suspect]
     Dosage: 1 DOSAGE FORM = 150MG/3ML
     Route: 042
     Dates: start: 20080420, end: 20080422
  5. MOTILIUM [Concomitant]
  6. NASONEX [Concomitant]
  7. ELUDRIL [Concomitant]
  8. TRIFLUCAN [Concomitant]
  9. TESTOSTERONE [Concomitant]

REACTIONS (1)
  - THROMBOCYTOPENIA [None]
